FAERS Safety Report 7485714-1 (Version None)
Quarter: 2011Q2

REPORT INFORMATION
  Report Type: 
  Country: None (occurrence: None)
  Receive Date: 20110517
  Receipt Date: 20110510
  Transmission Date: 20111010
  Serious: Yes (Disabling, Other)
  Sender: FDA-Public Use
  Company Number: PR-MERCK-0805USA02810

PATIENT
  Age: 55 Year
  Sex: Female

DRUGS (6)
  1. FOSAMAX [Suspect]
     Route: 048
     Dates: start: 20030201, end: 20030301
  2. FOSAMAX [Suspect]
     Route: 048
     Dates: end: 20080101
  3. FOSAMAX PLUS D [Suspect]
     Indication: OSTEOPOROSIS
     Route: 048
     Dates: start: 20070801, end: 20080101
  4. EVISTA [Concomitant]
     Indication: OSTEOPOROSIS
     Route: 065
     Dates: start: 20000101
  5. FOSAMAX [Suspect]
     Indication: OSTEOPOROSIS
     Route: 048
     Dates: start: 20020101, end: 20070701
  6. FOSAMAX [Suspect]
     Route: 048
     Dates: start: 20030301, end: 20080101

REACTIONS (13)
  - BONE LOSS [None]
  - JOINT CREPITATION [None]
  - PAIN [None]
  - MITRAL VALVE PROLAPSE [None]
  - GASTRITIS [None]
  - GASTROINTESTINAL DISORDER [None]
  - PAIN IN JAW [None]
  - OSTEONECROSIS OF JAW [None]
  - BONE DISORDER [None]
  - DIVERTICULUM INTESTINAL [None]
  - INFECTION [None]
  - TEMPOROMANDIBULAR JOINT SYNDROME [None]
  - MASTICATION DISORDER [None]
